FAERS Safety Report 23558113 (Version 7)
Quarter: 2025Q3

REPORT INFORMATION
  Report Type: Spontaneous
  Country: CA (occurrence: CA)
  Receive Date: 20240223
  Receipt Date: 20250701
  Transmission Date: 20251020
  Serious: Yes (Life-Threatening, Congenital Anomaly, Other)
  Sender: GLAXOSMITHKLINE
  Company Number: CA-GLAXOSMITHKLINE-CA2024AMR020785

PATIENT
  Age: 66 Year
  Sex: Male
  Weight: 70 kg

DRUGS (87)
  1. MEPOLIZUMAB [Suspect]
     Active Substance: MEPOLIZUMAB
     Indication: Asthma
     Dosage: 100 MG, Q4W
  2. MEPOLIZUMAB [Suspect]
     Active Substance: MEPOLIZUMAB
     Dosage: 100 MG, MO
  3. MEPOLIZUMAB [Suspect]
     Active Substance: MEPOLIZUMAB
  4. NUCALA [Suspect]
     Active Substance: MEPOLIZUMAB
     Indication: Asthma
  5. NUCALA [Suspect]
     Active Substance: MEPOLIZUMAB
     Indication: Product used for unknown indication
  6. NUCALA [Suspect]
     Active Substance: MEPOLIZUMAB
     Dosage: 100 MG, Q4W
     Route: 065
  7. NUCALA [Suspect]
     Active Substance: MEPOLIZUMAB
  8. NUCALA [Suspect]
     Active Substance: MEPOLIZUMAB
  9. NUCALA [Suspect]
     Active Substance: MEPOLIZUMAB
     Dosage: 100 MG, Q4W
  10. NUCALA [Suspect]
     Active Substance: MEPOLIZUMAB
     Dosage: 100 MG, MO
  11. NUCALA [Suspect]
     Active Substance: MEPOLIZUMAB
     Route: 065
  12. NUCALA [Suspect]
     Active Substance: MEPOLIZUMAB
  13. ALBUTEROL [Suspect]
     Active Substance: ALBUTEROL
     Indication: Product used for unknown indication
     Route: 065
  14. ALBUTEROL [Suspect]
     Active Substance: ALBUTEROL
  15. ANORO ELLIPTA [Suspect]
     Active Substance: UMECLIDINIUM BROMIDE\VILANTEROL TRIFENATATE
     Indication: Product used for unknown indication
     Dosage: 1 DF, QD
  16. ANORO ELLIPTA [Suspect]
     Active Substance: UMECLIDINIUM BROMIDE\VILANTEROL TRIFENATATE
  17. ANORO ELLIPTA [Suspect]
     Active Substance: UMECLIDINIUM BROMIDE\VILANTEROL TRIFENATATE
     Route: 065
  18. ANORO ELLIPTA [Suspect]
     Active Substance: UMECLIDINIUM BROMIDE\VILANTEROL TRIFENATATE
     Dosage: 1 DF, QD
     Route: 065
  19. ANORO ELLIPTA [Suspect]
     Active Substance: UMECLIDINIUM BROMIDE\VILANTEROL TRIFENATATE
     Route: 050
  20. PREVNAR 13 [Suspect]
     Active Substance: STREPTOCOCCUS PNEUMONIAE TYPE 1 CAPSULAR POLYSACCHARIDE DIPHTHERIA CRM197 PROTEIN CONJUGATE ANTIGEN\
     Indication: Immunisation
     Dosage: 0.5 ML, QD
  21. PREVNAR 13 [Suspect]
     Active Substance: STREPTOCOCCUS PNEUMONIAE TYPE 1 CAPSULAR POLYSACCHARIDE DIPHTHERIA CRM197 PROTEIN CONJUGATE ANTIGEN\
     Indication: Product used for unknown indication
  22. PREVNAR 13 [Suspect]
     Active Substance: STREPTOCOCCUS PNEUMONIAE TYPE 1 CAPSULAR POLYSACCHARIDE DIPHTHERIA CRM197 PROTEIN CONJUGATE ANTIGEN\
     Route: 065
  23. PREVNAR 13 [Suspect]
     Active Substance: STREPTOCOCCUS PNEUMONIAE TYPE 1 CAPSULAR POLYSACCHARIDE DIPHTHERIA CRM197 PROTEIN CONJUGATE ANTIGEN\
  24. PREVNAR 13 [Suspect]
     Active Substance: STREPTOCOCCUS PNEUMONIAE TYPE 1 CAPSULAR POLYSACCHARIDE DIPHTHERIA CRM197 PROTEIN CONJUGATE ANTIGEN\
  25. PREVNAR 13 [Suspect]
     Active Substance: STREPTOCOCCUS PNEUMONIAE TYPE 1 CAPSULAR POLYSACCHARIDE DIPHTHERIA CRM197 PROTEIN CONJUGATE ANTIGEN\
  26. PREVNAR 13 [Suspect]
     Active Substance: STREPTOCOCCUS PNEUMONIAE TYPE 1 CAPSULAR POLYSACCHARIDE DIPHTHERIA CRM197 PROTEIN CONJUGATE ANTIGEN\
  27. PREVNAR 13 [Suspect]
     Active Substance: STREPTOCOCCUS PNEUMONIAE TYPE 1 CAPSULAR POLYSACCHARIDE DIPHTHERIA CRM197 PROTEIN CONJUGATE ANTIGEN\
     Route: 065
  28. PREVNAR 13 [Suspect]
     Active Substance: STREPTOCOCCUS PNEUMONIAE TYPE 1 CAPSULAR POLYSACCHARIDE DIPHTHERIA CRM197 PROTEIN CONJUGATE ANTIGEN\
  29. PREVNAR 13 [Suspect]
     Active Substance: STREPTOCOCCUS PNEUMONIAE TYPE 1 CAPSULAR POLYSACCHARIDE DIPHTHERIA CRM197 PROTEIN CONJUGATE ANTIGEN\
  30. PNEUMOCOCCAL 13-VALENT CONJUGATE VACCINE [Suspect]
     Active Substance: PNEUMOCOCCAL 13-VALENT CONJUGATE VACCINE
     Indication: Prophylaxis
  31. PNEUMOCOCCAL 13-VALENT CONJUGATE VACCINE [Suspect]
     Active Substance: PNEUMOCOCCAL 13-VALENT CONJUGATE VACCINE
     Indication: Product used for unknown indication
     Route: 065
  32. PNEUMOCOCCAL 13-VALENT CONJUGATE VACCINE [Suspect]
     Active Substance: PNEUMOCOCCAL 13-VALENT CONJUGATE VACCINE
     Route: 065
  33. PNEUMOCOCCAL VACCINE POLYVALENT [Suspect]
     Active Substance: PNEUMOCOCCAL VACCINE POLYVALENT
     Indication: Immunisation
  34. PNEUMOCOCCAL VACCINE NOS [Suspect]
     Active Substance: PNEUMOCOCCAL VACCINE
     Indication: Prophylaxis
  35. BUDESONIDE [Suspect]
     Active Substance: BUDESONIDE
     Indication: Product used for unknown indication
     Route: 065
  36. BUDESONIDE [Suspect]
     Active Substance: BUDESONIDE
     Dosage: UNK, QD
     Route: 065
  37. BUDESONIDE [Suspect]
     Active Substance: BUDESONIDE
     Dosage: 1 DF, BID
     Route: 065
  38. BUDESONIDE [Suspect]
     Active Substance: BUDESONIDE
     Dosage: 2 DF, QD
     Route: 065
  39. BUDESONIDE [Suspect]
     Active Substance: BUDESONIDE
     Route: 065
  40. BUDESONIDE [Suspect]
     Active Substance: BUDESONIDE
     Dosage: UNK, QD
     Route: 065
  41. BUDESONIDE [Suspect]
     Active Substance: BUDESONIDE
     Dosage: UNK, BID
     Route: 065
  42. BUDESONIDE [Suspect]
     Active Substance: BUDESONIDE
     Dosage: 1 DF, BID
  43. BUDESONIDE [Suspect]
     Active Substance: BUDESONIDE
     Dosage: UNK, BID
  44. BUDESONIDE [Suspect]
     Active Substance: BUDESONIDE
  45. BUDESONIDE [Suspect]
     Active Substance: BUDESONIDE
  46. BUDESONIDE [Suspect]
     Active Substance: BUDESONIDE
  47. ELIQUIS [Suspect]
     Active Substance: APIXABAN
     Indication: Product used for unknown indication
     Route: 065
  48. ELIQUIS [Suspect]
     Active Substance: APIXABAN
     Dosage: 1 DF, BID
     Route: 065
  49. ELIQUIS [Suspect]
     Active Substance: APIXABAN
     Dosage: 1 DF, QD
     Route: 065
  50. ELIQUIS [Suspect]
     Active Substance: APIXABAN
     Route: 065
  51. ELIQUIS [Suspect]
     Active Substance: APIXABAN
     Route: 065
  52. EPINEPHRINE [Suspect]
     Active Substance: EPINEPHRINE
     Indication: Anaphylactic reaction
     Route: 065
  53. EPINEPHRINE BITARTRATE [Suspect]
     Active Substance: EPINEPHRINE BITARTRATE
     Indication: Anaphylactic reaction
     Route: 065
  54. EPINEPHRINE BITARTRATE [Suspect]
     Active Substance: EPINEPHRINE BITARTRATE
  55. EPINEPHRINE BITARTRATE [Suspect]
     Active Substance: EPINEPHRINE BITARTRATE
  56. EPINEPHRINE HYDROCHLORIDE [Suspect]
     Active Substance: EPINEPHRINE HYDROCHLORIDE
     Indication: Anaphylactic reaction
     Route: 065
  57. LEVALBUTEROL [Suspect]
     Active Substance: LEVALBUTEROL
     Indication: Product used for unknown indication
     Route: 065
  58. LEVALBUTEROL [Suspect]
     Active Substance: LEVALBUTEROL
     Route: 065
  59. OMALIZUMAB [Suspect]
     Active Substance: OMALIZUMAB
     Indication: Product used for unknown indication
     Route: 065
  60. OMALIZUMAB [Suspect]
     Active Substance: OMALIZUMAB
  61. PREDNISONE [Suspect]
     Active Substance: PREDNISONE
     Indication: Asthma
     Dosage: 1 DF, QD
  62. PREDNISONE [Suspect]
     Active Substance: PREDNISONE
     Indication: Product used for unknown indication
     Dosage: UNK, QD
  63. PREDNISONE [Suspect]
     Active Substance: PREDNISONE
     Route: 065
  64. PREDNISONE [Suspect]
     Active Substance: PREDNISONE
     Dosage: 1 DF, BID
  65. APIXABAN [Suspect]
     Active Substance: APIXABAN
     Indication: Product used for unknown indication
     Route: 065
  66. APIXABAN [Suspect]
     Active Substance: APIXABAN
     Dosage: 1 DF, QD
     Route: 065
  67. APIXABAN [Suspect]
     Active Substance: APIXABAN
     Dosage: 2 DF, QD
     Route: 065
  68. APIXABAN [Suspect]
     Active Substance: APIXABAN
     Dosage: 1 DF, BID
     Route: 065
  69. UMECLIDINIUM BROMIDE [Suspect]
     Active Substance: UMECLIDINIUM BROMIDE
     Indication: Product used for unknown indication
     Dosage: 1 DF, QD
     Route: 065
  70. UMECLIDINIUM BROMIDE [Suspect]
     Active Substance: UMECLIDINIUM BROMIDE
     Dosage: 1 G, QD
     Route: 065
  71. UMECLIDINIUM BROMIDE [Suspect]
     Active Substance: UMECLIDINIUM BROMIDE
     Route: 065
  72. UMECLIDINIUM BROMIDE [Suspect]
     Active Substance: UMECLIDINIUM BROMIDE
     Route: 065
  73. XOLAIR [Suspect]
     Active Substance: OMALIZUMAB
     Indication: Product used for unknown indication
  74. XOLAIR [Suspect]
     Active Substance: OMALIZUMAB
  75. APIXABAN [Suspect]
     Active Substance: APIXABAN
     Indication: Product used for unknown indication
     Dosage: 1 DF, BID
     Route: 065
  76. APIXABAN [Suspect]
     Active Substance: APIXABAN
     Route: 065
  77. APIXABAN [Suspect]
     Active Substance: APIXABAN
     Route: 065
  78. APIXABAN [Suspect]
     Active Substance: APIXABAN
     Dosage: 1 DF, QD
  79. APIXABAN [Suspect]
     Active Substance: APIXABAN
     Dosage: 1 DF, BID
  80. EPINEPHRINE BITARTRATE [Suspect]
     Active Substance: EPINEPHRINE BITARTRATE
     Indication: Anaphylactic reaction
  81. LEVALBUTEROL [Suspect]
     Active Substance: LEVALBUTEROL
     Indication: Product used for unknown indication
  82. SPIRIVA [Concomitant]
     Active Substance: TIOTROPIUM BROMIDE MONOHYDRATE
     Indication: Product used for unknown indication
     Route: 065
  83. UMECLIDINIUM [Concomitant]
     Active Substance: UMECLIDINIUM
     Indication: Product used for unknown indication
  84. UMECLIDINIUM [Concomitant]
     Active Substance: UMECLIDINIUM
     Dosage: 1 DF, QD
  85. UMECLIDINIUM [Concomitant]
     Active Substance: UMECLIDINIUM
     Dosage: 1 G, QD
     Route: 065
  86. RACEPINEPHRINE HYDROCHLORIDE [Concomitant]
     Active Substance: RACEPINEPHRINE HYDROCHLORIDE
     Indication: Product used for unknown indication
     Route: 065
  87. FORMOTEROL FUMARATE [Concomitant]
     Active Substance: FORMOTEROL FUMARATE
     Indication: Product used for unknown indication
     Route: 065

REACTIONS (19)
  - Acquired factor V deficiency [Not Recovered/Not Resolved]
  - Asthma [Not Recovered/Not Resolved]
  - Bronchopulmonary aspergillosis allergic [Not Recovered/Not Resolved]
  - Chronic obstructive pulmonary disease [Not Recovered/Not Resolved]
  - Coagulation factor V level abnormal [Not Recovered/Not Resolved]
  - Coagulation factor deficiency [Not Recovered/Not Resolved]
  - Dry skin [Not Recovered/Not Resolved]
  - Dyspnoea [Not Recovered/Not Resolved]
  - Erythema [Not Recovered/Not Resolved]
  - Factor V Leiden mutation [Not Recovered/Not Resolved]
  - Hypertension [Not Recovered/Not Resolved]
  - Multiple allergies [Not Recovered/Not Resolved]
  - Pruritus [Not Recovered/Not Resolved]
  - Congenital anomaly [Not Recovered/Not Resolved]
  - Therapeutic product effect incomplete [Unknown]
  - Loss of personal independence in daily activities [Not Recovered/Not Resolved]
  - Drug ineffective [Unknown]
  - Off label use [Unknown]
  - Product administered to patient of inappropriate age [Unknown]
